FAERS Safety Report 4408327-4 (Version None)
Quarter: 2004Q3

REPORT INFORMATION
  Report Type: 
  Country: None (occurrence: None)
  Receive Date: 20040722
  Receipt Date: 20040714
  Transmission Date: 20050211
  Serious: Yes (Hospitalization)
  Sender: FDA-Public Use
  Company Number: STA-AE-04-MTX-305

PATIENT
  Age: 76 Year
  Sex: Male

DRUGS (11)
  1. METHOTREXATE [Suspect]
     Indication: RHEUMATOID ARTHRITIS
     Dosage: 2.5 MG 2X PER 1 DAY, ORAL
     Route: 048
     Dates: start: 20040519, end: 20040523
  2. METHOTREXATE [Suspect]
     Indication: RHEUMATOID ARTHRITIS
     Dosage: 5 MG 1X PER 1 WK, ORAL
     Route: 048
     Dates: start: 20040524, end: 20040527
  3. METHOTREXATE [Suspect]
     Indication: RHEUMATOID ARTHRITIS
     Dosage: 2.5 MG 2X PER 1 DAY, ORAL
     Route: 048
     Dates: start: 20040528, end: 20040601
  4. METHOTREXATE [Suspect]
     Indication: RHEUMATOID ARTHRITIS
     Dosage: 5 MG 1X PER 1 WK, ORAL
     Route: 048
     Dates: start: 20040602
  5. OXEOL (BAMBUTEROL HYDROCHLORIDE) [Concomitant]
  6. LASIX [Concomitant]
  7. ISOPTIN [Concomitant]
  8. POTASSIUM CHLORIDE [Concomitant]
  9. PREDNISONE TAB [Concomitant]
  10. ALDACTONE [Concomitant]
  11. OMEPRAZOLE [Concomitant]

REACTIONS (4)
  - MEDICATION ERROR [None]
  - MOUTH ULCERATION [None]
  - PANCYTOPENIA [None]
  - STAPHYLOCOCCAL BACTERAEMIA [None]
